FAERS Safety Report 9143439 (Version 7)
Quarter: 2013Q3

REPORT INFORMATION
  Report Type: Spontaneous
  Country: US (occurrence: US)
  Receive Date: 20130306
  Receipt Date: 20130805
  Transmission Date: 20140515
  Serious: Yes (Hospitalization)
  Sender: FDA-Public Use
  Company Number: US-B.I. PHARMACEUTICALS,INC./RIDGEFIELD-2013-BI-05261BP

PATIENT
  Age: 72 Year
  Sex: Female
  Weight: 86.18 kg

DRUGS (6)
  1. PRADAXA [Suspect]
     Indication: ATRIAL FIBRILLATION
     Dosage: 300 MG
     Dates: start: 20110620, end: 20110804
  2. CELEXA [Concomitant]
     Dosage: 20 MG
     Route: 048
  3. SLOW FE [Concomitant]
     Dosage: 142 MG
     Route: 048
  4. FUROSEMIDE [Concomitant]
     Dosage: 80 MG
     Route: 048
  5. VERAPAMIL [Concomitant]
     Dosage: 240 MG
     Route: 048
  6. NAPROSYN [Concomitant]
     Indication: ARTHRITIS

REACTIONS (2)
  - Upper gastrointestinal haemorrhage [Unknown]
  - Gastric ulcer [Recovered/Resolved]
